FAERS Safety Report 9413583 (Version 1)
Quarter: 2013Q1

REPORT INFORMATION
  Report Type: Spontaneous
  Country: CA (occurrence: None)
  Receive Date: 20120330
  Receipt Date: 20120330
  Transmission Date: 20140127
  Serious: Yes (Death, Life-Threatening, Other)
  Sender: FDA-Public Use
  Company Number: 2012S1000075

PATIENT
  Age: 19 Year
  Sex: Male

DRUGS (13)
  1. INOMAX (NITRIC OXIDE) [Suspect]
     Dosage: 5 PPM; CONT
     Route: 055
     Dates: start: 20111218, end: 20111218
  2. LEVOPHED [Concomitant]
  3. FENTANYL [Concomitant]
  4. VERSED [Concomitant]
  5. NORMAL SALINE [Concomitant]
  6. LACTATED RINGER^S INJECTION [Concomitant]
  7. SODIUM BICARBONATE [Concomitant]
  8. VOLUVEN [Concomitant]
  9. ZEMURON [Concomitant]
  10. TAZOCIN [Concomitant]
  11. SOLU-CORTEF [Concomitant]
  12. EPINEPHRINE [Concomitant]
  13. VASOPRESSIN INJECTION [Concomitant]

REACTIONS (3)
  - Blood pressure decreased [None]
  - Oxygen saturation decreased [None]
  - Fat embolism [None]
